FAERS Safety Report 18685877 (Version 1)
Quarter: 2020Q4

REPORT INFORMATION
  Report Type: Spontaneous
  Country: US (occurrence: US)
  Receive Date: 20201230
  Receipt Date: 20201230
  Transmission Date: 20210114
  Serious: No
  Sender: FDA-Public Use
  Company Number: US-009507513-2012USA011236

PATIENT
  Age: 39 Year
  Sex: Male

DRUGS (3)
  1. KEYTRUDA [Suspect]
     Active Substance: PEMBROLIZUMAB
     Indication: GASTROINTESTINAL TRACT ADENOMA
  2. KEYTRUDA [Suspect]
     Active Substance: PEMBROLIZUMAB
     Indication: MUCINOUS ADENOCARCINOMA OF APPENDIX
  3. MITOMYCIN. [Concomitant]
     Active Substance: MITOMYCIN
     Indication: HYPERTHERMIC CHEMOTHERAPY

REACTIONS (1)
  - Product use in unapproved indication [Unknown]
